FAERS Safety Report 8454122-9 (Version None)
Quarter: 2012Q2

REPORT INFORMATION
  Report Type: 
  Country: None (occurrence: None)
  Receive Date: 20120620
  Receipt Date: 20120618
  Transmission Date: 20120825
  Serious: No
  Sender: FDA-Public Use
  Company Number: US-PFIZER INC-2012110645

PATIENT
  Sex: Female
  Weight: 81.633 kg

DRUGS (5)
  1. NEURONTIN [Concomitant]
     Dosage: UNK
  2. VISTARIL [Concomitant]
     Indication: SLEEP DISORDER
     Dosage: UNK
  3. CYMBALTA [Concomitant]
     Indication: ANXIETY
     Dosage: UNK
  4. CHANTIX [Suspect]
     Indication: SMOKING CESSATION THERAPY
     Dosage: 0.5 MG, 1X/DAY
     Route: 048
     Dates: start: 20120401, end: 20120401
  5. CHANTIX [Suspect]
     Dosage: 1 MG, 2X/DAY
     Route: 048
     Dates: start: 20120401

REACTIONS (3)
  - AGITATION [None]
  - INSOMNIA [None]
  - SLEEP DISORDER [None]
